FAERS Safety Report 5091843-2 (Version None)
Quarter: 2006Q3

REPORT INFORMATION
  Report Type: 
  Country: None (occurrence: None)
  Receive Date: 20060829
  Receipt Date: 20060711
  Transmission Date: 20061208
  Serious: Yes (Hospitalization, Other)
  Sender: FDA-Public Use
  Company Number: US-BRISTOL-MYERS SQUIBB COMPANY-13438411

PATIENT
  Age: 57 Year
  Sex: Female
  Weight: 75 kg

DRUGS (9)
  1. ERBITUX [Suspect]
     Indication: NEOPLASM MALIGNANT
     Route: 042
     Dates: start: 20060613, end: 20060718
  2. ALIMTA [Suspect]
     Indication: NEOPLASM MALIGNANT
     Route: 042
     Dates: start: 20060620, end: 20060711
  3. DIOVAN [Concomitant]
  4. HYDROCHLOROTHIAZIDE [Concomitant]
  5. NORMODYNE [Concomitant]
  6. LEXAPRO [Concomitant]
  7. PREVACID [Concomitant]
  8. MINOCYCLINE HCL [Concomitant]
  9. FIORICET [Concomitant]

REACTIONS (11)
  - ACNE [None]
  - CHILLS [None]
  - DEHYDRATION [None]
  - DYSPHAGIA [None]
  - FEBRILE NEUTROPENIA [None]
  - METASTASIS [None]
  - MUCOSAL INFLAMMATION [None]
  - PAIN [None]
  - PYREXIA [None]
  - URINARY TRACT INFECTION [None]
  - VOMITING [None]
